FAERS Safety Report 5570750-2 (Version None)
Quarter: 2007Q4

REPORT INFORMATION
  Report Type: 
  Country: None (occurrence: None)
  Receive Date: 20071221
  Receipt Date: 20070906
  Transmission Date: 20080405
  Serious: No
  Sender: FDA-Public Use
  Company Number: US-BAUSCH-2007BL003333

PATIENT
  Sex: Female

DRUGS (1)
  1. ZYLET [Suspect]
     Indication: CONJUNCTIVITIS
     Route: 047

REACTIONS (2)
  - DRUG HYPERSENSITIVITY [None]
  - EYE IRRITATION [None]
